FAERS Safety Report 8782486 (Version 1)
Quarter: 2012Q4

REPORT INFORMATION
  Report Type: 
  Country: US (occurrence: US)
  Receive Date: 20120913
  Receipt Date: 20120913
  Transmission Date: 20130627
  Serious: No
  Sender: FDA-Public Use
  Company Number: US-VERTEX PHARMACEUTICAL INC.-2012-019843

PATIENT
  Age: 69 Year
  Sex: Male
  Weight: 106.58 kg

DRUGS (7)
  1. INCIVEK [Suspect]
     Indication: HEPATITIS C
     Dosage: 750 mg, tid
     Route: 048
     Dates: start: 20120808
  2. RIBAVIRIN [Concomitant]
     Indication: HEPATITIS C
     Dosage: 600 mg, bid
     Route: 048
     Dates: start: 20120308
  3. PEGASYS [Concomitant]
     Indication: HEPATITIS C
     Dosage: 180 ?g/kg, UNK
     Route: 058
     Dates: start: 20120808
  4. LISINOPRIL [Concomitant]
     Indication: HYPERTENSION
     Dosage: 20 UNK, UNK
     Route: 048
  5. HYDROCODONE/A PAP [Concomitant]
     Indication: BACK PAIN
     Dosage: UNK, prn
     Route: 048
  6. MAXALT                             /01406501/ [Concomitant]
     Indication: MIGRAINE
     Route: 048
  7. CEFDINIR [Concomitant]
     Indication: SINUSITIS
     Dosage: 300 mg, bid
     Route: 048

REACTIONS (10)
  - Influenza like illness [Not Recovered/Not Resolved]
  - Sinusitis [Not Recovered/Not Resolved]
  - Pyrexia [Not Recovered/Not Resolved]
  - Pain [Not Recovered/Not Resolved]
  - Paraesthesia [Not Recovered/Not Resolved]
  - Flushing [Not Recovered/Not Resolved]
  - Chills [Not Recovered/Not Resolved]
  - Fatigue [Not Recovered/Not Resolved]
  - Dysgeusia [Not Recovered/Not Resolved]
  - Nausea [Not Recovered/Not Resolved]
